FAERS Safety Report 9721197 (Version 1)
Quarter: 2013Q4

REPORT INFORMATION
  Report Type: Spontaneous
  Country: US (occurrence: US)
  Receive Date: 20131129
  Receipt Date: 20131129
  Transmission Date: 20140711
  Serious: No
  Sender: FDA-Public Use
  Company Number: US-PFIZER INC-2013338156

PATIENT
  Age: 71 Year
  Sex: Female
  Weight: 57.14 kg

DRUGS (4)
  1. ATORVASTATIN CALCIUM [Suspect]
     Indication: BLOOD CHOLESTEROL INCREASED
     Dosage: 20 MG, ONCE A DAY AT NIGHT TIME
     Route: 048
     Dates: start: 2013, end: 201307
  2. NIFEDIPINE ER [Concomitant]
     Indication: HYPERTENSION
     Dosage: 60 MG, UNK
  3. METOPROLOL [Concomitant]
     Indication: HYPERTENSION
     Dosage: 50 MG, UNK
  4. ACTONEL [Concomitant]
     Dosage: UNK

REACTIONS (5)
  - Myalgia [Unknown]
  - Muscle spasms [Unknown]
  - Drug ineffective [Unknown]
  - Arthralgia [Unknown]
  - Pain in extremity [Unknown]
